FAERS Safety Report 10829854 (Version 1)
Quarter: 2015Q1

REPORT INFORMATION
  Report Type: Report from Study
  Country: US (occurrence: US)
  Receive Date: 20150219
  Receipt Date: 20150219
  Transmission Date: 20150721
  Serious: No
  Sender: FDA-Public Use
  Company Number: US-ABBVIE-14P-163-1189500-00

PATIENT
  Age: 53 Year
  Sex: Male

DRUGS (3)
  1. HUMIRA [Suspect]
     Active Substance: ADALIMUMAB
     Indication: PSORIASIS
     Dates: start: 20131019
  2. TOPICAL STEROID CREAM [Concomitant]
     Indication: PSORIASIS
  3. TOPICAL STEROID SOLUTION [Concomitant]
     Indication: PSORIASIS

REACTIONS (1)
  - Drug effect delayed [Recovering/Resolving]

NARRATIVE: CASE EVENT DATE: 20131019
